FAERS Safety Report 7699548-6 (Version None)
Quarter: 2011Q3

REPORT INFORMATION
  Report Type: 
  Country: None (occurrence: None)
  Receive Date: 20110821
  Receipt Date: 20110809
  Transmission Date: 20111222
  Serious: Yes (Other)
  Sender: FDA-Public Use
  Company Number: FR-BRISTOL-MYERS SQUIBB COMPANY-15986524

PATIENT
  Age: 63 Year
  Sex: Female
  Weight: 54 kg

DRUGS (2)
  1. MITOMYCIN [Suspect]
     Indication: METASTASES TO PERITONEUM
     Dosage: INJ
     Route: 033
     Dates: start: 20100315, end: 20100315
  2. IRINOTECAN HCL [Suspect]
     Indication: METASTASES TO PERITONEUM
     Route: 033
     Dates: start: 20100315, end: 20100315

REACTIONS (1)
  - PULMONARY EMBOLISM [None]
